FAERS Safety Report 4456022-8 (Version None)
Quarter: 2004Q3

REPORT INFORMATION
  Report Type: 
  Country: None (occurrence: None)
  Receive Date: 20040920
  Receipt Date: 20040423
  Transmission Date: 20050211
  Serious: Yes (Hospitalization)
  Sender: FDA-Public Use
  Company Number: 209047

PATIENT
  Age: 54 Year
  Sex: Female

DRUGS (3)
  1. MABTHERA (RITUXIMAB) CONC FOR SOLUTION FOR INFUSION [Suspect]
     Indication: SYSTEMIC LUPUS ERYTHEMATOSUS
     Dosage: 500 MG, X2,
  2. PREDNISOLONE [Concomitant]
  3. METHYLPREDNISOLONE [Concomitant]

REACTIONS (23)
  - ALPHA HAEMOLYTIC STREPTOCOCCAL INFECTION [None]
  - ANKLE FRACTURE [None]
  - ARTHRALGIA [None]
  - C-REACTIVE PROTEIN INCREASED [None]
  - CARDIAC MURMUR [None]
  - CONDITION AGGRAVATED [None]
  - CONVULSION [None]
  - ENDOCARDITIS BACTERIAL [None]
  - ERYTHEMA MULTIFORME [None]
  - FALL [None]
  - GLUCOSE URINE PRESENT [None]
  - HAEMATURIA [None]
  - HEADACHE [None]
  - HEPATOSPLENOMEGALY [None]
  - LIVER FUNCTION TEST ABNORMAL [None]
  - MITRAL VALVE INCOMPETENCE [None]
  - RASH ERYTHEMATOUS [None]
  - RED BLOOD CELL SEDIMENTATION RATE INCREASED [None]
  - SYNOVITIS [None]
  - THERAPY NON-RESPONDER [None]
  - TREMOR [None]
  - TRICUSPID VALVE INCOMPETENCE [None]
  - WHITE BLOOD CELL COUNT INCREASED [None]
